FAERS Safety Report 7105677-8 (Version None)
Quarter: 2010Q4

REPORT INFORMATION
  Report Type: 
  Country: None (occurrence: None)
  Receive Date: 20101116
  Receipt Date: 20101102
  Transmission Date: 20110411
  Serious: Yes (Hospitalization)
  Sender: FDA-Public Use
  Company Number: FR-AMGEN-FRASP2010003202

PATIENT

DRUGS (8)
  1. ENBREL [Suspect]
     Indication: ANKYLOSING SPONDYLITIS
     Dosage: 50 MG, QWK
     Route: 058
     Dates: start: 20090401, end: 20100201
  2. INFLUVAC [Suspect]
     Indication: IMMUNISATION
     Dates: start: 20091103, end: 20091103
  3. DIAMICRON [Concomitant]
  4. MAGNE-B6 [Concomitant]
     Dosage: 2 DOSES TOTAL DAILY
  5. TOPALGIC [Concomitant]
     Dosage: 200 MG TOTAL DAILY
  6. OMEPRAZOLE [Concomitant]
  7. CELEBREX [Concomitant]
     Indication: ANKYLOSING SPONDYLITIS
     Dosage: 400 MG TOTAL DAILY
     Dates: start: 20090101, end: 20100101
  8. ACTOS [Concomitant]

REACTIONS (5)
  - ANXIETY [None]
  - ASTHENIA [None]
  - EXTRAPYRAMIDAL DISORDER [None]
  - NIGHT SWEATS [None]
  - WEIGHT DECREASED [None]
